FAERS Safety Report 9491357 (Version 1)
Quarter: 2013Q3

REPORT INFORMATION
  Report Type: Spontaneous
  Country: US (occurrence: US)
  Receive Date: 20130830
  Receipt Date: 20130830
  Transmission Date: 20140515
  Serious: Yes (Hospitalization, Disabling)
  Sender: FDA-Public Use
  Company Number: US-ELI_LILLY_AND_COMPANY-US201308007441

PATIENT
  Age: 58 Year
  Sex: Female

DRUGS (4)
  1. CYMBALTA [Suspect]
     Indication: DEPRESSION
     Dosage: 60 MG, BID
  2. CYMBALTA [Suspect]
     Indication: PAIN
  3. ATEROL [Concomitant]
     Dosage: 30 MG, UNKNOWN
  4. GABAPENTINE [Concomitant]
     Dosage: 300 MG, UNKNOWN

REACTIONS (8)
  - Road traffic accident [Unknown]
  - Spinal fracture [Unknown]
  - Hip fracture [Unknown]
  - Rib fracture [Unknown]
  - Pain [Unknown]
  - Sensory loss [Unknown]
  - Areflexia [Unknown]
  - Gait disturbance [Not Recovered/Not Resolved]
